FAERS Safety Report 17350496 (Version 2)
Quarter: 2020Q1

REPORT INFORMATION
  Report Type: Report from Study
  Country: None (occurrence: ES)
  Receive Date: 20200130
  Receipt Date: 20200218
  Transmission Date: 20200409
  Serious: Yes (Hospitalization, Other)
  Sender: FDA-Public Use
  Company Number: ES-ABBVIE-20K-144-3252672-00

PATIENT
  Age: 78 Year
  Sex: Female
  Weight: 74 kg

DRUGS (9)
  1. TARGIN [Concomitant]
     Active Substance: NALOXONE HYDROCHLORIDE\OXYCODONE HYDROCHLORIDE
     Indication: PRODUCT USED FOR UNKNOWN INDICATION
     Dosage: 10/5 MG
     Route: 048
  2. CALCIUM [Concomitant]
     Active Substance: CALCIUM
     Indication: PRODUCT USED FOR UNKNOWN INDICATION
     Route: 048
  3. LANTHANUM CARBONATE. [Concomitant]
     Active Substance: LANTHANUM CARBONATE
     Indication: PRODUCT USED FOR UNKNOWN INDICATION
     Route: 048
  4. RIVOTRIL [Concomitant]
     Active Substance: CLONAZEPAM
     Indication: PRODUCT USED FOR UNKNOWN INDICATION
     Route: 048
  5. EUTIROX [Concomitant]
     Active Substance: LEVOTHYROXINE SODIUM
     Indication: PRODUCT USED FOR UNKNOWN INDICATION
     Route: 048
  6. AMANTADINE. [Concomitant]
     Active Substance: AMANTADINE HYDROCHLORIDE
     Indication: PRODUCT USED FOR UNKNOWN INDICATION
     Route: 048
  7. DUODOPA [Suspect]
     Active Substance: CARBIDOPA\LEVODOPA
     Indication: PARKINSON^S DISEASE
     Dosage: MORNING DOSE 10.6 ML, CONTINUOUS 3.3 ML/H, EXTRA 3 ML.
     Route: 050
     Dates: start: 20160331
  8. TARDYFERON [Concomitant]
     Active Substance: FERROUS SULFATE
     Indication: PRODUCT USED FOR UNKNOWN INDICATION
     Route: 048
  9. VIMPAT [Concomitant]
     Active Substance: LACOSAMIDE
     Indication: PRODUCT USED FOR UNKNOWN INDICATION
     Route: 048

REACTIONS (1)
  - Respiratory tract infection [Recovered/Resolved]

NARRATIVE: CASE EVENT DATE: 20200110
